FAERS Safety Report 24266115 (Version 1)
Quarter: 2024Q3

REPORT INFORMATION
  Report Type: Spontaneous
  Country: US (occurrence: US)
  Receive Date: 20240830
  Receipt Date: 20240830
  Transmission Date: 20241017
  Serious: No
  Sender: ROCHE
  Company Number: US-ROCHE-10000066876

PATIENT
  Age: 67 Year
  Sex: Female

DRUGS (3)
  1. CELLCEPT [Suspect]
     Active Substance: MYCOPHENOLATE MOFETIL
     Indication: Systemic scleroderma
     Dosage: 1000 MG
     Route: 048
  2. TADALAFIL [Concomitant]
     Active Substance: TADALAFIL
  3. OFEV [Concomitant]
     Active Substance: NINTEDANIB

REACTIONS (2)
  - COVID-19 [Unknown]
  - Off label use [Unknown]
